FAERS Safety Report 4743918-2 (Version None)
Quarter: 2005Q3

REPORT INFORMATION
  Report Type: 
  Country: None (occurrence: None)
  Receive Date: 20050812
  Receipt Date: 20050209
  Transmission Date: 20060218
  Serious: Yes (Disabling)
  Sender: FDA-Public Use
  Company Number: US-ROCHE-395176

PATIENT
  Age: 51 Year
  Sex: Female
  Weight: 77.6 kg

DRUGS (1)
  1. ROCEPHIN [Suspect]
     Indication: PNEUMONIA
     Route: 030
     Dates: start: 19991219, end: 19991224

REACTIONS (1)
  - VESTIBULAR DISORDER [None]
